FAERS Safety Report 6104577-X (Version None)
Quarter: 2009Q1

REPORT INFORMATION
  Report Type: 
  Country: None (occurrence: None)
  Receive Date: 20090304
  Receipt Date: 20090119
  Transmission Date: 20090719
  Serious: Yes (Other)
  Sender: FDA-Public Use
  Company Number: CHPA2009US02302

PATIENT
  Age: 65 Year
  Sex: Male
  Weight: 106.6 kg

DRUGS (1)
  1. EXCEDRIN (MIGRAINE) [Suspect]
     Indication: SLEEP DISORDER
     Dosage: 2 DF, QHS, ORAL
     Route: 048
     Dates: start: 20080101

REACTIONS (3)
  - DIABETES MELLITUS [None]
  - DIZZINESS [None]
  - INTENTIONAL DRUG MISUSE [None]
